FAERS Safety Report 24122267 (Version 1)
Quarter: 2024Q3

REPORT INFORMATION
  Report Type: Spontaneous
  Country: US (occurrence: US)
  Receive Date: 20240722
  Receipt Date: 20240722
  Transmission Date: 20241017
  Serious: No
  Sender: ROCHE
  Company Number: US-ROCHE-10000030483

PATIENT
  Age: 44 Year
  Sex: Female

DRUGS (1)
  1. XOLAIR PFS [Suspect]
     Active Substance: OMALIZUMAB
     Indication: Chronic spontaneous urticaria
     Dosage: 300MG SQ INJECTION EVERY 4 WEEKS
     Route: 058

REACTIONS (2)
  - Arthralgia [Unknown]
  - Fatigue [Unknown]
